FAERS Safety Report 7508384-2 (Version None)
Quarter: 2011Q2

REPORT INFORMATION
  Report Type: 
  Country: None (occurrence: None)
  Receive Date: 20110527
  Receipt Date: 20110519
  Transmission Date: 20111010
  Serious: Yes (Hospitalization, Other)
  Sender: FDA-Public Use
  Company Number: US-PFIZER INC-2009157088

PATIENT
  Sex: Male

DRUGS (3)
  1. DILANTIN-125 [Suspect]
     Indication: CONVULSION
     Dosage: 8 MG, 2X/DAY
     Route: 048
  2. DILANTIN-125 [Suspect]
     Dosage: 125 MG, UNK
     Route: 048
     Dates: start: 20051115
  3. DILANTIN-125 [Suspect]
     Dosage: 200 MG, 2X/DAY
     Route: 048
     Dates: start: 20051128

REACTIONS (1)
  - STEVENS-JOHNSON SYNDROME [None]
